FAERS Safety Report 5291775-0 (Version None)
Quarter: 2007Q2

REPORT INFORMATION
  Report Type: 
  Country: None (occurrence: None)
  Receive Date: 20070406
  Receipt Date: 20070406
  Transmission Date: 20071010
  Serious: No
  Sender: FDA-Public Use
  Company Number: None

PATIENT
  Sex: Female
  Weight: 90.7194 kg

DRUGS (2)
  1. FENTANYL [Suspect]
     Indication: ARTHRALGIA
     Dosage: 1 PATCH  Q 3 DAYS  PERCUTANEOUS
     Route: 003
     Dates: start: 20070112, end: 20070409
  2. FENTANYL [Suspect]
     Indication: BACK PAIN
     Dosage: 1 PATCH  Q 3 DAYS  PERCUTANEOUS
     Route: 003
     Dates: start: 20070112, end: 20070409

REACTIONS (5)
  - ABASIA [None]
  - CONSTIPATION [None]
  - DRUG INEFFECTIVE [None]
  - PHARMACEUTICAL PRODUCT COMPLAINT [None]
  - THERAPEUTIC RESPONSE UNEXPECTED WITH DRUG SUBSTITUTION [None]
